FAERS Safety Report 9379221 (Version 1)
Quarter: 2013Q2

REPORT INFORMATION
  Report Type: Spontaneous
  Country: JP (occurrence: None)
  Receive Date: 20130408
  Receipt Date: 20130408
  Transmission Date: 20140414
  Serious: Yes (Death, Life-Threatening, Hospitalization)
  Sender: FDA-Public Use
  Company Number: JP-2013-0220

PATIENT
  Age: 68 Year
  Sex: Male
  Weight: 52 kg

DRUGS (11)
  1. NAVELBINE (VINORELBINE TARTRATE) INFUSION [Suspect]
     Indication: LUNG NEOPLASM MALIGNANT
     Route: 042
     Dates: start: 20091110, end: 20100426
  2. CISPLATIN (CISPLATIN) [Suspect]
     Indication: LUNG CARCINOMA CELL TYPE UNSPECIFIED STAGE II
     Dosage: CYCLICAL
     Route: 042
     Dates: start: 20091110, end: 20091208
  3. CISPLATIN (CISPLATIN) [Suspect]
     Indication: LUNG CARCINOMA CELL TYPE UNSPECIFIED STAGE II
     Dosage: CYCLICAL (1/28)
     Dates: start: 20100319, end: 20100420
  4. FASTIC (NATEGLINDE) [Concomitant]
  5. METHYCOBAL (MECOBALAMIN) [Concomitant]
  6. MEROPHEN (MEROPENEM) [Concomitant]
  7. MINOCYCLINE HYDROCHLORIDE (MINOCYCLINE HYDROCHLORIDE) [Concomitant]
  8. SOLUMEDROL (METHYLPREDNISOLONE SODIUM SUCCINATE) [Concomitant]
  9. CIPROXAN (CIPROFLOXACIN HYDROCHLORIDE) [Concomitant]
  10. CARBENIN (BETAMIPRON, PANIPENEM) [Concomitant]
  11. PREDONINE (PREDNISOLONE) PER ORAL NOS [Concomitant]

REACTIONS (2)
  - Interstitial lung disease [None]
  - Respiratory distress [None]
